FAERS Safety Report 12845703 (Version 2)
Quarter: 2016Q4

REPORT INFORMATION
  Report Type: Spontaneous
  Country: US (occurrence: US)
  Receive Date: 20161013
  Receipt Date: 20161225
  Transmission Date: 20170207
  Serious: No
  Sender: FDA-Public Use
  Company Number: US-ASTRAZENECA-2016SF05738

PATIENT
  Sex: Female
  Weight: 56.7 kg

DRUGS (1)
  1. SYMBICORT [Suspect]
     Active Substance: BUDESONIDE\FORMOTEROL FUMARATE DIHYDRATE
     Indication: CHRONIC OBSTRUCTIVE PULMONARY DISEASE
     Dosage: 160/4.5 MCG ONE PUFF TWICE PER DAY
     Route: 055
     Dates: start: 20160925

REACTIONS (8)
  - Malaise [Not Recovered/Not Resolved]
  - Bronchitis [Not Recovered/Not Resolved]
  - Feeling abnormal [Unknown]
  - Drug dose omission [Unknown]
  - Cough [Not Recovered/Not Resolved]
  - Insomnia [Not Recovered/Not Resolved]
  - Fatigue [Not Recovered/Not Resolved]
  - Device malfunction [Unknown]
